FAERS Safety Report 5400825-X (Version None)
Quarter: 2007Q3

REPORT INFORMATION
  Report Type: 
  Country: None (occurrence: None)
  Receive Date: 20070730
  Receipt Date: 20070725
  Transmission Date: 20080115
  Serious: Yes (Hospitalization, Other)
  Sender: FDA-Public Use
  Company Number: US-SHR-US-2007-027625

PATIENT
  Age: 23 Year
  Sex: Female

DRUGS (2)
  1. MIRENA [Suspect]
     Indication: CONTRACEPTION
     Dosage: 20 A?G/DAY, CONT
     Route: 015
     Dates: start: 20060101, end: 20061001
  2. ANTI-SMOKING AGENTS [Concomitant]
     Indication: SMOKING CESSATION THERAPY
     Dates: start: 20070701

REACTIONS (6)
  - BACK PAIN [None]
  - BONE PAIN [None]
  - DEPRESSION [None]
  - HEADACHE [None]
  - MOOD SWINGS [None]
  - PARASITIC GASTROENTERITIS [None]
